APPROVED DRUG PRODUCT: JADELLE
Active Ingredient: LEVONORGESTREL
Strength: 75MG/IMPLANT **Federal Register determination that product was not discontinued or withdrawn for safety or effectiveness reasons**
Dosage Form/Route: IMPLANT;IMPLANTATION
Application: N020544 | Product #001
Applicant: POPULATION COUNCIL CENTER FOR BIOMEDICAL RESEARCH
Approved: Nov 1, 1996 | RLD: Yes | RS: No | Type: DISCN